APPROVED DRUG PRODUCT: ATROPINE SULFATE
Active Ingredient: ATROPINE SULFATE
Strength: 0.5MG/5ML (0.1MG/ML)
Dosage Form/Route: SOLUTION;INTRAVENOUS
Application: A212868 | Product #002 | TE Code: AP
Applicant: ACCORD HEALTHCARE INC
Approved: Jul 26, 2021 | RLD: No | RS: No | Type: RX